FAERS Safety Report 14385605 (Version 1)
Quarter: 2018Q1

REPORT INFORMATION
  Report Type: Spontaneous
  Country: US (occurrence: US)
  Receive Date: 20180115
  Receipt Date: 20180115
  Transmission Date: 20180509
  Serious: Yes (Other)
  Sender: FDA-Public Use
  Company Number: US-SA-2017SA002266

PATIENT
  Age: 50 Year
  Sex: Female
  Weight: 89 kg

DRUGS (4)
  1. TAXOTERE [Suspect]
     Active Substance: DOCETAXEL
     Indication: BREAST CANCER FEMALE
     Route: 051
     Dates: start: 20000905, end: 20000905
  2. NEUPOGEN [Concomitant]
     Active Substance: FILGRASTIM
  3. DECADRON [Concomitant]
     Active Substance: DEXAMETHASONE
  4. TAXOTERE [Suspect]
     Active Substance: DOCETAXEL
     Indication: BREAST CANCER FEMALE
     Route: 051
     Dates: start: 20001120, end: 20001120

REACTIONS (9)
  - Injury [Unknown]
  - Pain [Unknown]
  - Hair texture abnormal [Unknown]
  - Hair colour changes [Unknown]
  - Impaired quality of life [Unknown]
  - Alopecia [Not Recovered/Not Resolved]
  - Anxiety [Unknown]
  - Emotional distress [Unknown]
  - Impaired work ability [Unknown]

NARRATIVE: CASE EVENT DATE: 200104
